FAERS Safety Report 19037584 (Version 1)
Quarter: 2021Q1

REPORT INFORMATION
  Report Type: Spontaneous
  Country: US (occurrence: US)
  Receive Date: 20210322
  Receipt Date: 20210322
  Transmission Date: 20210420
  Serious: Yes (Other)
  Sender: FDA-Public Use
  Company Number: US-APNAR-000082

PATIENT
  Age: 64 Year
  Sex: Female

DRUGS (5)
  1. BUPROPION. [Suspect]
     Active Substance: BUPROPION
     Indication: PRODUCT USED FOR UNKNOWN INDICATION
     Dosage: STRENGTH 100 MG?START DATE: APPROXIMATELY 30 YEARS AGO?STOP DATE : APPROXIMATELY 1 WEEK AGO
  2. SPIRONOLACTONE. [Concomitant]
     Active Substance: SPIRONOLACTONE
  3. VALACICLOVIR [Concomitant]
     Active Substance: VALACYCLOVIR HYDROCHLORIDE
     Indication: ORAL HERPES
  4. ARMOUR THYROID [Concomitant]
     Active Substance: THYROID, PORCINE
  5. RIZATRIPTAN. [Concomitant]
     Active Substance: RIZATRIPTAN
     Indication: MIGRAINE

REACTIONS (2)
  - Somnolence [Recovering/Resolving]
  - Drug abuse [Unknown]
